FAERS Safety Report 4780157-3 (Version None)
Quarter: 2005Q3

REPORT INFORMATION
  Report Type: 
  Country: None (occurrence: None)
  Receive Date: 20050914
  Receipt Date: 20050425
  Transmission Date: 20060218
  Serious: Yes (Death)
  Sender: FDA-Public Use
  Company Number: 163-20785-05040490

PATIENT
  Age: 85 Year
  Sex: Female

DRUGS (6)
  1. THALOMID [Suspect]
     Indication: MULTIPLE MYELOMA
     Dosage: 150 MG, DAILY, ORAL
     Route: 048
     Dates: start: 20041028, end: 20050218
  2. ZANTAC [Concomitant]
  3. POTASSIUM (POTASSIUM) [Concomitant]
  4. STOOL SOFTENER (DOCUSATE SODIUM) [Concomitant]
  5. CALCIUM (CALCIUM) [Concomitant]
  6. OXYCONTIN [Concomitant]

REACTIONS (2)
  - DEATH [None]
  - DISEASE PROGRESSION [None]
